FAERS Safety Report 7535121-8 (Version None)
Quarter: 2011Q2

REPORT INFORMATION
  Report Type: 
  Country: None (occurrence: None)
  Receive Date: 20110609
  Receipt Date: 20110602
  Transmission Date: 20111010
  Serious: No
  Sender: FDA-Public Use
  Company Number: US-BIOGENIDEC-2011BI020604

PATIENT
  Sex: Male

DRUGS (1)
  1. TYSABRI [Suspect]
     Indication: MULTIPLE SCLEROSIS
     Route: 042
     Dates: start: 20080918

REACTIONS (4)
  - MUSCULOSKELETAL DISORDER [None]
  - PHARYNGITIS STREPTOCOCCAL [None]
  - BRADYPHRENIA [None]
  - CENTRAL NERVOUS SYSTEM LESION [None]
